FAERS Safety Report 20757116 (Version 1)
Quarter: 2022Q2

REPORT INFORMATION
  Report Type: Report from Study
  Country: US (occurrence: US)
  Receive Date: 20220427
  Receipt Date: 20220427
  Transmission Date: 20220721
  Serious: Yes (Hospitalization)
  Sender: FDA-Public Use
  Company Number: US-PFIZER INC-202200603747

PATIENT
  Age: 62 Year
  Sex: Female
  Weight: 90.7 kg

DRUGS (21)
  1. FUROSEMIDE [Suspect]
     Active Substance: FUROSEMIDE
     Indication: Oedema peripheral
     Dosage: 20 MG, 3X/DAY
     Route: 042
     Dates: start: 20210205, end: 20210206
  2. BUMETANIDE [Suspect]
     Active Substance: BUMETANIDE
     Indication: Oedema peripheral
     Dosage: 1 MG, 2X/DAY
     Route: 042
     Dates: start: 20210207, end: 20210209
  3. DAVOCETICEPT [Suspect]
     Active Substance: DAVOCETICEPT
     Indication: Colorectal adenocarcinoma
     Dosage: 0.3 MG/KG, Q1W
     Route: 042
     Dates: start: 20201117, end: 20210126
  4. BETAPACE [Suspect]
     Active Substance: SOTALOL HYDROCHLORIDE
     Indication: Atrial fibrillation
     Dosage: 120 MG, BID
     Route: 048
     Dates: start: 20200701, end: 20210209
  5. DIGOXIN [Suspect]
     Active Substance: DIGOXIN
     Indication: Atrial fibrillation
     Dosage: 0.125 MG, QD
     Route: 048
     Dates: start: 20210129, end: 20210209
  6. DILTIAZEM [Suspect]
     Active Substance: DILTIAZEM
     Indication: Atrial fibrillation
     Dosage: 30 MG, 4X/DAY
     Route: 048
     Dates: start: 20210204, end: 20210209
  7. FLUTICASONE PROPIONATE AND SALMETEROL [Concomitant]
     Active Substance: FLUTICASONE PROPIONATE\SALMETEROL XINAFOATE
     Dosage: UNK
     Dates: start: 20181008
  8. BENADRYL [Concomitant]
     Active Substance: DIPHENHYDRAMINE HYDROCHLORIDE
     Dosage: UNK
     Dates: start: 201806
  9. LOPERAMIDE HYDROCHLORIDE [Concomitant]
     Active Substance: LOPERAMIDE HYDROCHLORIDE
     Dosage: UNK
     Dates: start: 20200701
  10. EMLA [Concomitant]
     Active Substance: LIDOCAINE\PRILOCAINE
     Dosage: UNK
     Dates: start: 20180711
  11. LORATADINE [Concomitant]
     Active Substance: LORATADINE
     Dosage: UNK
     Dates: start: 20180712
  12. ZOFRAN [Concomitant]
     Active Substance: ONDANSETRON HYDROCHLORIDE
     Dosage: UNK
     Dates: start: 201806
  13. PROAIR HFA [Concomitant]
     Active Substance: ALBUTEROL SULFATE
     Dosage: UNK
     Dates: start: 20180514
  14. COMPAZINE [Concomitant]
     Active Substance: PROCHLORPERAZINE MALEATE
     Dosage: UNK
     Dates: start: 20180711
  15. GAS-X [Concomitant]
     Active Substance: DIMETHICONE
     Dosage: UNK
     Dates: start: 201806
  16. OXYCODONE [Concomitant]
     Active Substance: OXYCODONE
     Dosage: UNK
     Dates: start: 20201130
  17. MELATONIN [Concomitant]
     Active Substance: MELATONIN
     Dosage: UNK
     Dates: start: 20201224
  18. CLINDAMYCIN [Concomitant]
     Active Substance: CLINDAMYCIN
     Dosage: UNK
     Dates: start: 20210105
  19. PERCOCET [Concomitant]
     Active Substance: ACETAMINOPHEN\OXYCODONE HYDROCHLORIDE
     Dosage: UNK
     Dates: start: 201806, end: 20201201
  20. MORPHINE [Concomitant]
     Active Substance: MORPHINE
     Dosage: UNK
     Dates: start: 20201125, end: 20201125
  21. CLOBETASOL PROPIONATE [Concomitant]
     Active Substance: CLOBETASOL PROPIONATE
     Dosage: UNK
     Dates: start: 20201229, end: 20210105

REACTIONS (3)
  - Ventricular tachycardia [Recovered/Resolved]
  - Dermatitis bullous [Recovered/Resolved]
  - Pyrexia [Recovered/Resolved]

NARRATIVE: CASE EVENT DATE: 20210126
